FAERS Safety Report 21959555 (Version 3)
Quarter: 2023Q2

REPORT INFORMATION
  Report Type: Report from Study
  Country: US (occurrence: US)
  Receive Date: 20230206
  Receipt Date: 20230510
  Transmission Date: 20230721
  Serious: Yes (Hospitalization, Other)
  Sender: FDA-Public Use
  Company Number: US-OTSUKA-2022_038389

PATIENT
  Age: 70 Year
  Sex: Male

DRUGS (1)
  1. CEDAZURIDINE\DECITABINE [Suspect]
     Active Substance: CEDAZURIDINE\DECITABINE
     Indication: Myelodysplastic syndrome
     Dosage: 1 DF, QD ON DAYS 1 TO 4 EACH 28 DAY CYCLE
     Route: 048
     Dates: start: 20210805

REACTIONS (6)
  - Illness [Unknown]
  - Transfusion [Unknown]
  - White blood cell count decreased [Unknown]
  - Palpitations [Unknown]
  - Electrocardiogram abnormal [Unknown]
  - Product use issue [Unknown]

NARRATIVE: CASE EVENT DATE: 20230306
